FAERS Safety Report 5414236-4 (Version None)
Quarter: 2007Q3

REPORT INFORMATION
  Report Type: 
  Country: None (occurrence: None)
  Receive Date: 20070814
  Receipt Date: 20070803
  Transmission Date: 20080115
  Serious: Yes (Hospitalization, Other)
  Sender: FDA-Public Use
  Company Number: GB-PFIZER INC-2007065265

PATIENT
  Age: 65 Year
  Sex: Female

DRUGS (1)
  1. VARENICLINE TABLETS [Suspect]
     Route: 048

REACTIONS (4)
  - ATRIAL FIBRILLATION [None]
  - CHEST PAIN [None]
  - PALPITATIONS [None]
  - TROPONIN T INCREASED [None]
